FAERS Safety Report 10593272 (Version 3)
Quarter: 2015Q2

REPORT INFORMATION
  Report Type: Spontaneous
  Country: US (occurrence: US)
  Receive Date: 20141119
  Receipt Date: 20150512
  Transmission Date: 20150821
  Serious: Yes (Hospitalization, Disabling, Other)
  Sender: FDA-Public Use
  Company Number: US-009507513-1411USA006837

PATIENT
  Sex: Female

DRUGS (4)
  1. FOSAMAX [Suspect]
     Active Substance: ALENDRONATE SODIUM
     Indication: OSTEOPOROSIS
     Dosage: 70 MG, UNK
     Route: 048
     Dates: start: 2001, end: 2006
  2. CORTICOSTEROIDS (UNSPECIFIED) [Concomitant]
     Active Substance: UNSPECIFIED INGREDIENT
     Dosage: UNK
     Dates: start: 1984
  3. CALTRATE WITH VITAMIN D [Concomitant]
     Active Substance: CALCIUM CARBONATE\VITAMIN D
     Dosage: 4 TABLETS (1200MG), QD
     Dates: start: 2001
  4. GNC WOMENS ULTRA MEGA ACTIVE [Concomitant]
     Dosage: 2 PILLS, QD
     Dates: start: 2000

REACTIONS (49)
  - Low turnover osteopathy [Unknown]
  - Osteonecrosis [Unknown]
  - Foot fracture [Unknown]
  - Toe amputation [Unknown]
  - Ulcerative keratitis [Unknown]
  - Corneal disorder [Unknown]
  - Foot amputation [Unknown]
  - Upper gastrointestinal haemorrhage [Unknown]
  - Open reduction of fracture [Unknown]
  - Fracture nonunion [Unknown]
  - Type 2 diabetes mellitus [Unknown]
  - Hypothyroidism [Unknown]
  - Femur fracture [Unknown]
  - Arthrodesis [Unknown]
  - Hip arthroplasty [Unknown]
  - Peripheral venous disease [Not Recovered/Not Resolved]
  - Soft tissue infection [Unknown]
  - Facial nerve disorder [Unknown]
  - Internal fixation of fracture [Unknown]
  - Gastrooesophageal reflux disease [Unknown]
  - Knee arthroplasty [Unknown]
  - Tooth extraction [Unknown]
  - Chest pain [Unknown]
  - Arthritis bacterial [Unknown]
  - Wound drainage [Recovered/Resolved]
  - Food allergy [Unknown]
  - Anaphylactic reaction [Unknown]
  - Limb asymmetry [Unknown]
  - Bone graft [Unknown]
  - Pain [Not Recovered/Not Resolved]
  - Otitis media [Unknown]
  - Corneal neovascularisation [Unknown]
  - Retinal degeneration [Unknown]
  - Femur fracture [Unknown]
  - Hypertension [Unknown]
  - Knee arthroplasty [Unknown]
  - Food allergy [Unknown]
  - Arthrodesis [Unknown]
  - Foot amputation [Not Recovered/Not Resolved]
  - Vitamin D deficiency [Unknown]
  - Calcium deficiency [Unknown]
  - Infection [Unknown]
  - Drug hypersensitivity [Unknown]
  - Rash [Unknown]
  - Femur fracture [Unknown]
  - Toe amputation [Unknown]
  - Lagophthalmos [Unknown]
  - Rubber sensitivity [Unknown]
  - Urticaria [Unknown]

NARRATIVE: CASE EVENT DATE: 2001
